FAERS Safety Report 9985619 (Version 1)
Quarter: 2014Q1

REPORT INFORMATION
  Report Type: Spontaneous
  Country: PL (occurrence: PL)
  Receive Date: 20140307
  Receipt Date: 20140307
  Transmission Date: 20141002
  Serious: Yes (Death, Other)
  Sender: FDA-Public Use
  Company Number: PHHY2014PL028118

PATIENT
  Age: 42 Year
  Sex: Female

DRUGS (7)
  1. CICLOSPORIN [Suspect]
     Indication: IMMUNOSUPPRESSION
     Dosage: 3 MG/KG, UNK
  2. METHOTREXATE [Suspect]
     Indication: IMMUNOSUPPRESSION
     Dosage: 15 MG/M2, UNK
  3. METHOTREXATE [Suspect]
     Dosage: 10 MG/M2, UNK
  4. MYCOPHENOLATE MOFETIL [Concomitant]
  5. CORTICOSTEROIDS [Concomitant]
  6. IDARUBICIN [Concomitant]
     Dosage: 10 MG/M2, UNK
  7. ETOPOSIDE [Concomitant]
     Dosage: 100 MG/M2, UNK

REACTIONS (6)
  - Disease progression [Fatal]
  - Acute myeloid leukaemia [Fatal]
  - Septic shock [Unknown]
  - Multi-organ failure [Unknown]
  - Graft versus host disease in liver [Unknown]
  - Graft versus host disease in skin [Unknown]
